FAERS Safety Report 23652063 (Version 1)
Quarter: 2024Q1

REPORT INFORMATION
  Report Type: Spontaneous
  Country: BR (occurrence: BR)
  Receive Date: 20240320
  Receipt Date: 20240320
  Transmission Date: 20240410
  Serious: Yes (Hospitalization)
  Sender: FDA-Public Use
  Company Number: BR-PHATHOM PHARMACEUTICALS INC.-2024PHT00135

PATIENT

DRUGS (1)
  1. VONOPRAZAN FUMARATE [Suspect]
     Active Substance: VONOPRAZAN FUMARATE
     Indication: Product used for unknown indication
     Dosage: UNK
     Route: 065

REACTIONS (15)
  - Dehydration [Unknown]
  - Dysphagia [Unknown]
  - Insomnia [Unknown]
  - Vomiting [Unknown]
  - Retching [Unknown]
  - Abdominal discomfort [Unknown]
  - Condition aggravated [Unknown]
  - Off label use [Unknown]
  - Abdominal pain upper [Unknown]
  - Hunger [Unknown]
  - Thirst [Unknown]
  - Weight decreased [Unknown]
  - Malaise [Unknown]
  - Blood pressure decreased [Unknown]
  - Nausea [Unknown]
